FAERS Safety Report 20933212 (Version 14)
Quarter: 2022Q4

REPORT INFORMATION
  Report Type: Report from Study
  Country: CH (occurrence: CH)
  Receive Date: 20220608
  Receipt Date: 20221114
  Transmission Date: 20230113
  Serious: Yes (Other)
  Sender: FDA-Public Use
  Company Number: CH-NOVARTISPH-NVSC2022CH095067

PATIENT
  Sex: Female
  Weight: 70 kg

DRUGS (2)
  1. BROLUCIZUMAB [Suspect]
     Active Substance: BROLUCIZUMAB
     Indication: Neovascular age-related macular degeneration
     Dosage: 6 MG/0.05 ML
     Route: 031
     Dates: start: 20220125
  2. BROLUCIZUMAB [Suspect]
     Active Substance: BROLUCIZUMAB
     Dosage: 6 MG/0.05 ML
     Route: 031
     Dates: start: 20220419, end: 20220421

REACTIONS (3)
  - Retinal neovascularisation [Recovered/Resolved]
  - Intraocular pressure increased [Recovered/Resolved]
  - Blindness [Recovered/Resolved]

NARRATIVE: CASE EVENT DATE: 20220526
